FAERS Safety Report 12682660 (Version 2)
Quarter: 2016Q3

REPORT INFORMATION
  Report Type: Spontaneous
  Country: US (occurrence: US)
  Receive Date: 20160825
  Receipt Date: 20160826
  Transmission Date: 20161109
  Serious: No
  Sender: FDA-Public Use
  Company Number: US-STRIDES ARCOLAB LIMITED-2016SP001868

PATIENT

DRUGS (6)
  1. MULTI VITAMIN [Concomitant]
     Active Substance: VITAMINS
     Indication: PRODUCT USED FOR UNKNOWN INDICATION
     Dosage: UNK
  2. TRUTOL GLUCOSE TOLERANCE TEST [Concomitant]
     Indication: PRODUCT USED FOR UNKNOWN INDICATION
     Dosage: 75 G, UNK
  3. VERAPAMIL [Suspect]
     Active Substance: VERAPAMIL HYDROCHLORIDE
     Indication: HYPERINSULINAEMIC HYPOGLYCAEMIA
     Dosage: UNK
  4. ACARBOSE. [Suspect]
     Active Substance: ACARBOSE
     Indication: HYPERINSULINAEMIC HYPOGLYCAEMIA
     Dosage: 10 MG, QD
  5. DIAZOXIDE [Concomitant]
     Active Substance: DIAZOXIDE
     Indication: HYPERINSULINAEMIC HYPOGLYCAEMIA
     Dosage: 3 MG/KG, QD
  6. NIFEDIPINE. [Suspect]
     Active Substance: NIFEDIPINE
     Indication: HYPERINSULINAEMIC HYPOGLYCAEMIA
     Dosage: 25 MG, BEFORE MEALS.

REACTIONS (3)
  - Drug intolerance [Unknown]
  - Nausea [Unknown]
  - Dizziness [Unknown]
